FAERS Safety Report 18431950 (Version 1)
Quarter: 2020Q4

REPORT INFORMATION
  Report Type: Spontaneous
  Country: ES (occurrence: ES)
  Receive Date: 20201027
  Receipt Date: 20201027
  Transmission Date: 20210114
  Serious: Yes (Life-Threatening, Hospitalization)
  Sender: FDA-Public Use
  Company Number: ES-JNJFOC-20201021341

PATIENT
  Age: 79 Year
  Sex: Female
  Weight: 69 kg

DRUGS (10)
  1. PRANDIN                            /01393601/ [Concomitant]
     Indication: TYPE 2 DIABETES MELLITUS
     Dosage: 1 COMPRIMIDO CADA 8 HORAS
     Dates: start: 20151214, end: 20200929
  2. ATOZET [Concomitant]
     Active Substance: ATORVASTATIN CALCIUM\EZETIMIBE
     Indication: HYPERCHOLESTEROLAEMIA
     Dosage: 1 COMPRIMIDO CADA DIA 10/20MG 30 TABLETS
     Dates: start: 20170925
  3. TOUJEO [Concomitant]
     Active Substance: INSULIN GLARGINE
     Indication: TYPE 2 DIABETES MELLITUS
     Dosage: 40UI EN LA CENA, 0UI EN LA COMIDA, 0UI EN EL DESAYUNO
     Route: 065
     Dates: start: 20170201
  4. INVOKANA [Suspect]
     Active Substance: CANAGLIFLOZIN
     Indication: TYPE 2 DIABETES MELLITUS
     Dosage: 1 COMPRIMIDO CADA DIA
     Route: 048
     Dates: start: 20170201, end: 20200929
  5. FENOFIBRATE. [Concomitant]
     Active Substance: FENOFIBRATE
     Indication: HYPERTRIGLYCERIDAEMIA
     Dosage: 1 COMPRIMIDO CADA DIA
     Dates: start: 20190617
  6. EUCREAS [Suspect]
     Active Substance: METFORMIN HYDROCHLORIDE\VILDAGLIPTIN
     Indication: TYPE 2 DIABETES MELLITUS
     Dosage: 1 COMPRIMIDO CADA DIA
     Route: 065
     Dates: start: 20170503, end: 20200929
  7. ELORGAN [Concomitant]
     Indication: CEREBRAL ARTERY OCCLUSION
     Dosage: 1 COMPRIMIDO CADA 8 HORAS
     Dates: start: 20120627
  8. AXIAGO [Concomitant]
     Active Substance: ESOMEPRAZOLE MAGNESIUM
     Indication: GASTROOESOPHAGEAL REFLUX DISEASE
     Dosage: 1 COMPRIMIDO CADA DIA
     Dates: start: 20170729
  9. CINITAPRIDE. [Concomitant]
     Active Substance: CINITAPRIDE
     Indication: DYSPEPSIA
     Dosage: 1 COMPRIMIDO CADA 8 HORAS
     Dates: start: 20170206
  10. ENALAPRIL [Concomitant]
     Active Substance: ENALAPRIL
     Dosage: 1 COMPRIMIDO CADA DIA
     Dates: start: 20200805

REACTIONS (3)
  - Metabolic acidosis [Recovering/Resolving]
  - Diabetic ketoacidosis [Recovering/Resolving]
  - Diabetic ketoacidosis [Recovered/Resolved]

NARRATIVE: CASE EVENT DATE: 20200726
